FAERS Safety Report 12812813 (Version 1)
Quarter: 2016Q4

REPORT INFORMATION
  Report Type: Spontaneous
  Country: PT (occurrence: PT)
  Receive Date: 20161005
  Receipt Date: 20161005
  Transmission Date: 20170207
  Serious: Yes (Hospitalization, Other)
  Sender: FDA-Public Use
  Company Number: PT-SA-2016SA181960

PATIENT
  Age: 4 Year
  Sex: Male

DRUGS (10)
  1. SARGRAMOSTIM [Suspect]
     Active Substance: SARGRAMOSTIM
     Indication: NEUROBLASTOMA
     Route: 041
  2. UNITUXIN [Suspect]
     Active Substance: DINUTUXIMAB
     Indication: NEUROBLASTOMA
     Route: 041
     Dates: start: 20160729
  3. INTERLEUKIN-2 [Suspect]
     Active Substance: ALDESLEUKIN
     Indication: NEUROBLASTOMA
     Dosage: DOSE REDUCTION TO 50%
     Route: 041
     Dates: start: 20160831
  4. PARACETAMOL [Concomitant]
     Active Substance: ACETAMINOPHEN
  5. CLEMASTINE [Concomitant]
     Active Substance: CLEMASTINE
  6. INTERLEUKIN-2 [Suspect]
     Active Substance: ALDESLEUKIN
     Indication: NEUROBLASTOMA
     Dosage: DOSE: 4.5 MUI/M2
     Route: 041
     Dates: start: 20160729
  7. MORPHINE [Suspect]
     Active Substance: MORPHINE
     Indication: NEUROBLASTOMA
     Route: 065
  8. COTRIMOXAZOLE [Concomitant]
     Active Substance: SULFAMETHOXAZOLE\TRIMETHOPRIM
  9. UNITUXIN [Suspect]
     Active Substance: DINUTUXIMAB
     Indication: NEUROBLASTOMA
     Route: 041
     Dates: start: 20160718, end: 20160721
  10. GABAPENTIN. [Concomitant]
     Active Substance: GABAPENTIN

REACTIONS (16)
  - Eyelid oedema [Recovered/Resolved]
  - Weight increased [Unknown]
  - Pyrexia [Recovered/Resolved]
  - Pain in extremity [Unknown]
  - Chills [Recovered/Resolved]
  - Oedema peripheral [Unknown]
  - Decreased appetite [Unknown]
  - Injection site inflammation [Unknown]
  - Somnolence [Recovered/Resolved]
  - Hypotension [Unknown]
  - Diarrhoea [Unknown]
  - Hypoxia [Unknown]
  - Oliguria [Recovered/Resolved]
  - Tachycardia [Recovered/Resolved]
  - Bronchospasm [Unknown]
  - Livedo reticularis [Recovered/Resolved]

NARRATIVE: CASE EVENT DATE: 20160718
